FAERS Safety Report 17229900 (Version 3)
Quarter: 2021Q2

REPORT INFORMATION
  Report Type: Spontaneous
  Country: FR (occurrence: FR)
  Receive Date: 20200103
  Receipt Date: 20210507
  Transmission Date: 20210716
  Serious: Yes (Hospitalization, Other)
  Sender: FDA-Public Use
  Company Number: FR-009507513-1912FRA012603

PATIENT
  Age: 43 Year
  Sex: Female
  Weight: 49.8 kg

DRUGS (18)
  1. FIDAXOMICIN [Suspect]
     Active Substance: FIDAXOMICIN
     Indication: CLOSTRIDIUM DIFFICILE COLITIS
     Dosage: 400 MG, IN 1 DAY
     Route: 048
     Dates: start: 20191009, end: 20191018
  2. RAMIPRIL. [Concomitant]
     Active Substance: RAMIPRIL
     Indication: PRODUCT USED FOR UNKNOWN INDICATION
     Dosage: UNK UNK, ONCE DAILY (0?0?1)
     Route: 048
     Dates: start: 20191108
  3. VALACYCLOVIR HYDROCHLORIDE. [Concomitant]
     Active Substance: VALACYCLOVIR HYDROCHLORIDE
     Dosage: UNK UNK, UNKNOWN FREQ.
     Route: 065
     Dates: start: 20191028
  4. NOXAFIL [Concomitant]
     Active Substance: POSACONAZOLE
     Indication: PRODUCT USED FOR UNKNOWN INDICATION
     Dosage: 300 MG, ONCE DAILY (1?0?0)
     Route: 048
     Dates: start: 20191028
  5. BACTRIM [Suspect]
     Active Substance: SULFAMETHOXAZOLE\TRIMETHOPRIM
     Indication: ANTIBIOTIC THERAPY
     Dosage: 1 DOSAGE FORM, QD
     Route: 048
     Dates: start: 20191008, end: 20191012
  6. TAZOCILLINE [Suspect]
     Active Substance: PIPERACILLIN SODIUM\TAZOBACTAM SODIUM
     Indication: ANTIBIOTIC THERAPY
     Dosage: UNK UNK, UNKNOWN FREQ.
     Route: 041
     Dates: start: 20191007, end: 20191011
  7. ISOPTINE [Concomitant]
     Active Substance: VERAPAMIL HYDROCHLORIDE
     Indication: PRODUCT USED FOR UNKNOWN INDICATION
     Dosage: UNK UNK, UNKNOWN FREQ.
     Route: 048
     Dates: start: 20191108
  8. ORACILLINE (PENICILLIN V) [Concomitant]
     Active Substance: PENICILLIN V
     Indication: ANTIBIOTIC THERAPY
     Dosage: 1 IU, TWICE DAILY (1 UI 1?0?1)
     Route: 048
     Dates: start: 20191108
  9. DIFFU?K [Concomitant]
     Active Substance: POTASSIUM CHLORIDE
     Indication: PRODUCT USED FOR UNKNOWN INDICATION
     Dosage: UNK UNK, UNKNOWN FREQ.
     Route: 048
     Dates: start: 20191108
  10. EUPANTOL [Concomitant]
     Active Substance: PANTOPRAZOLE SODIUM
     Indication: PRODUCT USED FOR UNKNOWN INDICATION
     Dosage: 40 MILLIGRAM, BID
     Route: 048
     Dates: end: 20191108
  11. CORTANCYL [Concomitant]
     Active Substance: PREDNISONE
     Indication: PRODUCT USED FOR UNKNOWN INDICATION
     Dosage: 7 MG, ONCE DAILY (1?0?0)
     Route: 048
     Dates: start: 20191108
  12. AUGMENTIN [Concomitant]
     Active Substance: AMOXICILLIN\CLAVULANATE POTASSIUM
     Indication: LIMB INJURY
     Dosage: UNK UNK, UNKNOWN FREQ.
     Route: 065
  13. TAZOCILLINE [Suspect]
     Active Substance: PIPERACILLIN SODIUM\TAZOBACTAM SODIUM
     Dosage: UNK UNK, UNKNOWN FREQ.
     Route: 041
     Dates: start: 20190904, end: 20190905
  14. FLAGYL [Suspect]
     Active Substance: METRONIDAZOLE\METRONIDAZOLE HYDROCHLORIDE
     Indication: ANTIBIOTIC THERAPY
     Dosage: 1500 MG, ONCE DAILY (TOTAL DOSE)
     Route: 041
     Dates: start: 20191007, end: 20191008
  15. VALACYCLOVIR HYDROCHLORIDE. [Concomitant]
     Active Substance: VALACYCLOVIR HYDROCHLORIDE
     Dosage: UNK
     Dates: start: 20190903, end: 20190909
  16. BACTRIM [Suspect]
     Active Substance: SULFAMETHOXAZOLE\TRIMETHOPRIM
     Dosage: 1 DF, TOTAL DOSE IN 1 DAY
     Route: 048
     Dates: start: 20190903
  17. AMIKACIN. [Suspect]
     Active Substance: AMIKACIN
     Indication: ANTIBIOTIC THERAPY
     Dosage: UNK UNK, UNKNOWN FREQ.
     Route: 042
     Dates: start: 20191007, end: 20191007
  18. SERETIDE [Concomitant]
     Active Substance: FLUTICASONE PROPIONATE\SALMETEROL XINAFOATE
     Indication: PRODUCT USED FOR UNKNOWN INDICATION
     Dosage: 2 DF, ONCE DAILY (500MG/50 MG ? 1?0?1)
     Route: 055
     Dates: start: 20191108

REACTIONS (1)
  - Hepatitis [Recovered/Resolved]

NARRATIVE: CASE EVENT DATE: 20191012
